FAERS Safety Report 13617830 (Version 1)
Quarter: 2017Q2

REPORT INFORMATION
  Report Type: Spontaneous
  Country: CO (occurrence: CO)
  Receive Date: 20170606
  Receipt Date: 20170606
  Transmission Date: 20170830
  Serious: Yes (Death, Other)
  Sender: FDA-Public Use
  Company Number: CO-R-PHARM US LLC-2017RPM00066

PATIENT
  Sex: Female

DRUGS (4)
  1. TRASTUZUMAB [Concomitant]
     Active Substance: TRASTUZUMAB
  2. DEXAMETHASONE. [Concomitant]
     Active Substance: DEXAMETHASONE
  3. ONDANSETRON [Concomitant]
     Active Substance: ONDANSETRON
  4. IXEMPRA [Suspect]
     Active Substance: IXABEPILONE
     Indication: BREAST CANCER
     Dosage: 68 MG, EVERY 3 WEEKS
     Route: 042
     Dates: start: 20150409, end: 20170115

REACTIONS (3)
  - Metastases to lung [Not Recovered/Not Resolved]
  - Cardio-respiratory arrest [Fatal]
  - Respiratory distress [Fatal]

NARRATIVE: CASE EVENT DATE: 2016
